FAERS Safety Report 7079020-7 (Version None)
Quarter: 2010Q4

REPORT INFORMATION
  Report Type: 
  Country: None (occurrence: None)
  Receive Date: 20101102
  Receipt Date: 20100525
  Transmission Date: 20110411
  Serious: Yes (Other)
  Sender: FDA-Public Use
  Company Number: US-BAYER-200922359NA

PATIENT
  Age: 23 Year
  Sex: Female
  Weight: 58 kg

DRUGS (6)
  1. YAZ [Suspect]
     Indication: CONTRACEPTION
     Route: 048
     Dates: start: 20060930, end: 20080101
  2. NEXIUM [Concomitant]
     Indication: HYPERCHLORHYDRIA
     Route: 065
  3. ALLEGRA D 24 HOUR [Concomitant]
     Indication: HYPERSENSITIVITY
     Route: 065
  4. LIDOCAINE [Concomitant]
     Indication: PRODUCT USED FOR UNKNOWN INDICATION
     Route: 065
  5. NAPROXEN [Concomitant]
     Indication: PRODUCT USED FOR UNKNOWN INDICATION
     Route: 065
  6. CELEXA [Concomitant]
     Indication: SLEEP DISORDER
     Route: 065

REACTIONS (4)
  - ANXIETY [None]
  - GALLBLADDER DISORDER [None]
  - INJURY [None]
  - PAIN [None]
